FAERS Safety Report 4787439-X (Version None)
Quarter: 2005Q4

REPORT INFORMATION
  Report Type: 
  Country: None (occurrence: None)
  Receive Date: 20051003
  Receipt Date: 20050708
  Transmission Date: 20060501
  Serious: Yes (Hospitalization, Disabling)
  Sender: FDA-Public Use
  Company Number: 2005098583

PATIENT
  Sex: Female
  Weight: 90.7194 kg

DRUGS (12)
  1. BEXTRA [Suspect]
     Indication: FIBROMYALGIA
     Dosage: 10  MG (10 MG, 1 IN 1 D)
     Dates: end: 20050101
  2. BEXTRA [Suspect]
     Indication: POSTOPERATIVE CARE
     Dosage: 10  MG (10 MG, 1 IN 1 D)
     Dates: end: 20050101
  3. DICLOFENAC SODIUM [Suspect]
     Indication: FIBROMYALGIA
     Dosage: (1 IN 1 D), ORAL
     Route: 048
     Dates: start: 20050501, end: 20050601
  4. NAPROSYN [Suspect]
     Indication: FIBROMYALGIA
     Dates: start: 20050601, end: 20050601
  5. RELAFEN [Suspect]
     Indication: FIBROMYALGIA
     Dates: start: 20050601
  6. AVALIDE [Concomitant]
  7. TIAZAC [Concomitant]
  8. SINGULAIR [Concomitant]
  9. SEREVENT [Concomitant]
  10. PULMICORT [Concomitant]
  11. ADVAIR DISKUS 100/50 [Concomitant]
  12. ALBUTEROL [Concomitant]

REACTIONS (8)
  - ABDOMINAL PAIN UPPER [None]
  - ANGINA PECTORIS [None]
  - ARTERIAL DISORDER [None]
  - CARDIAC VALVE DISEASE [None]
  - DRUG INEFFECTIVE [None]
  - FLUID RETENTION [None]
  - SWELLING [None]
  - THERAPEUTIC RESPONSE UNEXPECTED [None]
